FAERS Safety Report 14265404 (Version 10)
Quarter: 2018Q1

REPORT INFORMATION
  Report Type: Spontaneous
  Country: IT (occurrence: IT)
  Receive Date: 20171208
  Receipt Date: 20180330
  Transmission Date: 20180508
  Serious: Yes (Life-Threatening, Hospitalization, Congenital Anomaly, Other)
  Sender: FDA-Public Use
  Company Number: IT-BAUSCH-BL-2017-032558

PATIENT
  Age: 33 Week
  Sex: Female
  Weight: 1.97 kg

DRUGS (3)
  1. NIMESULIDE [Suspect]
     Active Substance: NIMESULIDE
     Indication: FOETAL EXPOSURE DURING PREGNANCY
     Dosage: 100 MG/DAY FROM THE 4TH MONTH TO DELIVERY
     Route: 064
  2. DICLOFENAC [Suspect]
     Active Substance: DICLOFENAC
     Indication: SCIATICA
     Dosage: FROM THE 2ND TO THE 3RD MONTH DURING MOTHER^S PREGNANCY
     Route: 064
  3. NIMESULIDE [Suspect]
     Active Substance: NIMESULIDE
     Indication: SCIATICA
     Dosage: 100-200MG/DAY FROM 3 MONTHS PRIOR TO CONCEPTION TO 1 MONTH AFTER CONCEPTION. MATERNAL DOSE 1 MCG/L
     Route: 064

REACTIONS (2)
  - Maternal drugs affecting foetus [Unknown]
  - Renal failure neonatal [Recovered/Resolved]
